FAERS Safety Report 9708347 (Version 1)
Quarter: 2013Q4

REPORT INFORMATION
  Report Type: Spontaneous
  Country: US (occurrence: None)
  Receive Date: 20131121
  Receipt Date: 20131121
  Transmission Date: 20140711
  Serious: Yes (Other)
  Sender: FDA-Public Use
  Company Number: ORE201311--000041

PATIENT
  Age: 66 Year
  Sex: Female

DRUGS (4)
  1. NALOXONE [Suspect]
     Indication: DEPRESSED LEVEL OF CONSCIOUSNESS
     Route: 042
  2. HYDROMORPHONE [Suspect]
     Route: 058
  3. BUPIVACAINE [Suspect]
     Route: 058
  4. DOPAMINE [Suspect]
     Indication: HYPOTENSION

REACTIONS (11)
  - Circulatory collapse [None]
  - Hypertension [None]
  - Oxygen saturation increased [None]
  - Blood glucose increased [None]
  - Grand mal convulsion [None]
  - Mental impairment [None]
  - Respiratory rate decreased [None]
  - Haemodynamic instability [None]
  - Electrocardiogram QRS complex shortened [None]
  - Hypotension [None]
  - Drug administration error [None]
